FAERS Safety Report 16789725 (Version 5)
Quarter: 2021Q3

REPORT INFORMATION
  Report Type: Spontaneous
  Country: US (occurrence: US)
  Receive Date: 20190910
  Receipt Date: 20210906
  Transmission Date: 20211014
  Serious: Yes (Hospitalization)
  Sender: FDA-Public Use
  Company Number: US-SA-2019SA245982

PATIENT
  Age: 56 Year
  Sex: Female

DRUGS (19)
  1. DUPIXENT [Suspect]
     Active Substance: DUPILUMAB
     Indication: PULMONARY EOSINOPHILIA
     Dosage: 300 MG, QOW
     Route: 058
  2. LANSOPRAZOLE. [Concomitant]
     Active Substance: LANSOPRAZOLE
  3. LEVOCETIRIZINE DIHYDROCHLORIDE. [Concomitant]
     Active Substance: LEVOCETIRIZINE DIHYDROCHLORIDE
  4. ALBUTEROL HFA [Concomitant]
     Active Substance: ALBUTEROL SULFATE
  5. MONTELUKAST SODIUM. [Concomitant]
     Active Substance: MONTELUKAST SODIUM
  6. SYMBICORT [Concomitant]
     Active Substance: BUDESONIDE\FORMOTEROL FUMARATE DIHYDRATE
  7. SYNTHROID [Concomitant]
     Active Substance: LEVOTHYROXINE SODIUM
  8. DUPIXENT [Suspect]
     Active Substance: DUPILUMAB
     Indication: HYPOTHYROIDISM
  9. LEVEMIR [Concomitant]
     Active Substance: INSULIN DETEMIR
  10. DUPIXENT [Suspect]
     Active Substance: DUPILUMAB
     Indication: STATUS ASTHMATICUS
     Dosage: 300 MG, QOW
     Route: 058
     Dates: start: 20190905
  11. DUPIXENT [Suspect]
     Active Substance: DUPILUMAB
     Indication: ILLNESS
  12. DUPIXENT [Suspect]
     Active Substance: DUPILUMAB
     Indication: GASTROOESOPHAGEAL REFLUX DISEASE
  13. DUPIXENT [Suspect]
     Active Substance: DUPILUMAB
     Indication: TYPE 2 DIABETES MELLITUS
  14. PROAIR HFA [Concomitant]
     Active Substance: ALBUTEROL SULFATE
     Dosage: 90 MCG AER PW BAS
  15. DUPIXENT [Suspect]
     Active Substance: DUPILUMAB
     Indication: ASTHMA
     Dosage: UNK MG
     Dates: start: 201907
  16. VITAMIN B?1 [Concomitant]
     Active Substance: THIAMINE HYDROCHLORIDE
  17. ZANTAC [Concomitant]
     Active Substance: RANITIDINE HYDROCHLORIDE
  18. HUMALOG [Concomitant]
     Active Substance: INSULIN LISPRO
  19. VITAMIN D [VITAMIN D NOS] [Concomitant]
     Active Substance: VITAMIN D NOS

REACTIONS (5)
  - Asthma [Recovering/Resolving]
  - Cough [Unknown]
  - Intentional dose omission [Unknown]
  - Pruritus [Not Recovered/Not Resolved]
  - Product use in unapproved indication [Unknown]

NARRATIVE: CASE EVENT DATE: 2019
